FAERS Safety Report 13009582 (Version 1)
Quarter: 2016Q4

REPORT INFORMATION
  Report Type: Spontaneous
  Country: DE (occurrence: DE)
  Receive Date: 20161208
  Receipt Date: 20161208
  Transmission Date: 20170207
  Serious: Yes (Other)
  Sender: FDA-Public Use
  Company Number: DE-CONCORDIA PHARMACEUTICALS INC.-GSH201612-006296

PATIENT
  Sex: Female

DRUGS (2)
  1. HYDROXYCHLOROQUINE [Suspect]
     Active Substance: HYDROXYCHLOROQUINE
     Route: 048
  2. HYDROXYCHLOROQUINE [Suspect]
     Active Substance: HYDROXYCHLOROQUINE
     Indication: SJOGREN^S SYNDROME
     Route: 048

REACTIONS (16)
  - Suicidal ideation [Recovered/Resolved]
  - Confusional state [Recovered/Resolved]
  - Feeling cold [Recovered/Resolved]
  - Muscle tightness [Recovered/Resolved]
  - Headache [Recovering/Resolving]
  - Depression [Recovered/Resolved]
  - Restlessness [Recovered/Resolved]
  - Spinal pain [Recovering/Resolving]
  - Affect lability [Recovering/Resolving]
  - Blister [Recovering/Resolving]
  - Dizziness [Recovered/Resolved]
  - Impaired work ability [Recovering/Resolving]
  - Nausea [Recovered/Resolved]
  - Sleep disorder [Recovering/Resolving]
  - Head discomfort [Recovered/Resolved]
  - Myalgia [Recovering/Resolving]
